FAERS Safety Report 6784118-4 (Version None)
Quarter: 2010Q2

REPORT INFORMATION
  Report Type: 
  Country: None (occurrence: None)
  Receive Date: 20100618
  Receipt Date: 20100604
  Transmission Date: 20101027
  Serious: Yes (Other)
  Sender: FDA-Public Use
  Company Number: IPC201006-000157

PATIENT
  Age: 58 Year
  Sex: Male

DRUGS (11)
  1. METFORMIN HCL [Suspect]
     Indication: DIABETES MELLITUS
     Dosage: 2000 MG, 2 IN 1 D; 1000 MG, 2 IN 1 D
  2. GLIPIZIDE [Suspect]
     Indication: DIABETES MELLITUS
     Dosage: 10 MG /DAY
  3. CRUDE PRICKLY PEAR CACTUS PADS [Suspect]
     Indication: DIABETES MELLITUS
  4. ROSUVASTATIN [Concomitant]
  5. FENOFIBRATE [Concomitant]
  6. ASPIRIN [Concomitant]
  7. LISINOPRIL [Concomitant]
  8. GABAPENTIN [Concomitant]
  9. TRAMADOL HCL [Concomitant]
  10. NABUMETONE [Concomitant]
  11. NITROGLYCERIN [Concomitant]

REACTIONS (1)
  - HYPOGLYCAEMIA [None]
